FAERS Safety Report 9913222 (Version 1)
Quarter: 2014Q1

REPORT INFORMATION
  Report Type: Spontaneous
  Country: US (occurrence: US)
  Receive Date: 20140220
  Receipt Date: 20140220
  Transmission Date: 20141002
  Serious: No
  Sender: FDA-Public Use
  Company Number: US-BAYER-2014-025539

PATIENT
  Age: 60 Year
  Sex: Female
  Weight: 61 kg

DRUGS (3)
  1. ALEVE CAPLET [Suspect]
     Indication: INFLAMMATION
     Dosage: 1 DF, QD
     Route: 048
     Dates: start: 20140212, end: 20140214
  2. METHIMAZOLE [Concomitant]
  3. ARIMIDEX [Concomitant]

REACTIONS (2)
  - Cheilitis [Not Recovered/Not Resolved]
  - Intentional drug misuse [None]
